FAERS Safety Report 18529971 (Version 3)
Quarter: 2021Q3

REPORT INFORMATION
  Report Type: Spontaneous
  Country: US (occurrence: US)
  Receive Date: 20201120
  Receipt Date: 20210930
  Transmission Date: 20211014
  Serious: Yes (Other)
  Sender: FDA-Public Use
  Company Number: US-PURDUE-USA-2020-0165539

PATIENT
  Sex: Male

DRUGS (3)
  1. TRAMADOL CR TABLETS (RHODES 21?745) [Suspect]
     Active Substance: TRAMADOL
     Indication: PRODUCT USED FOR UNKNOWN INDICATION
     Dosage: UNKNOWN
     Route: 048
  2. HYDROCODONE BITARTRATE AND ACETAMINOPHEN [Suspect]
     Active Substance: ACETAMINOPHEN\HYDROCODONE BITARTRATE
     Indication: PRODUCT USED FOR UNKNOWN INDICATION
     Dosage: UNKNOWN
     Route: 048
  3. VICODIN [Suspect]
     Active Substance: ACETAMINOPHEN\HYDROCODONE BITARTRATE
     Indication: PRODUCT USED FOR UNKNOWN INDICATION
     Dosage: UNKNOWN
     Route: 065

REACTIONS (17)
  - Drug withdrawal syndrome [Unknown]
  - Sleep deficit [Unknown]
  - Toothache [Unknown]
  - Disturbance in attention [Unknown]
  - Memory impairment [Unknown]
  - Drug dependence [Unknown]
  - Cognitive disorder [Unknown]
  - Weight decreased [Unknown]
  - Dental caries [Unknown]
  - Sexual dysfunction [Unknown]
  - Mental disorder [Unknown]
  - Anger [Unknown]
  - Learning disability [Unknown]
  - Dyspnoea [Unknown]
  - Persistent depressive disorder [Unknown]
  - Tooth loss [Unknown]
  - Tinnitus [Unknown]
